FAERS Safety Report 11669979 (Version 1)
Quarter: 2015Q4

REPORT INFORMATION
  Report Type: Spontaneous
  Country: BR (occurrence: BR)
  Receive Date: 20151027
  Receipt Date: 20151027
  Transmission Date: 20160304
  Serious: Yes (Other)
  Sender: FDA-Public Use
  Company Number: BR-PFIZER INC-2015318976

PATIENT
  Age: 40 Year
  Sex: Female
  Weight: 70 kg

DRUGS (5)
  1. FRONTAL XR [Concomitant]
     Active Substance: ALPRAZOLAM
     Indication: DEPRESSION
     Dosage: 1 MG, UNK
  2. PRISTIQ EXTENDED RELEASE [Suspect]
     Active Substance: DESVENLAFAXINE SUCCINATE
     Dosage: 100 MG, DAILY (IN THE MORNING)
     Route: 048
     Dates: end: 2015
  3. PRISTIQ EXTENDED RELEASE [Suspect]
     Active Substance: DESVENLAFAXINE SUCCINATE
     Indication: MAJOR DEPRESSION
     Dosage: 50 MG, DAILY
     Route: 048
     Dates: start: 2014
  4. FRONTAL XR [Concomitant]
     Active Substance: ALPRAZOLAM
     Indication: ANXIETY
  5. PRISTIQ EXTENDED RELEASE [Suspect]
     Active Substance: DESVENLAFAXINE SUCCINATE
     Dosage: 150 MG, DAILY (100 MG IN THE MORNING AND 50 MG AT LUNCH TIME)
     Route: 048
     Dates: start: 201508

REACTIONS (4)
  - Product solubility abnormal [Unknown]
  - Drug ineffective [Unknown]
  - Medication residue present [Unknown]
  - Malabsorption [Unknown]
